FAERS Safety Report 16806930 (Version 1)
Quarter: 2019Q3

REPORT INFORMATION
  Report Type: Spontaneous
  Country: US (occurrence: US)
  Receive Date: 20190913
  Receipt Date: 20190913
  Transmission Date: 20191005
  Serious: No
  Sender: FDA-Public Use
  Company Number: US-3M-2018-US-014771

PATIENT
  Age: 65 Year
  Sex: Female

DRUGS (2)
  1. CARAMEL VARNISH [SODIUM FLUORIDE] [Suspect]
     Active Substance: SODIUM FLUORIDE
     Route: 048
  2. PERIDEX [Suspect]
     Active Substance: CHLORHEXIDINE GLUCONATE
     Indication: GINGIVITIS
     Dosage: ONE RINSE
     Route: 048
     Dates: start: 20180827, end: 20180827

REACTIONS (5)
  - Swelling [Unknown]
  - Blister [Unknown]
  - Lip swelling [Unknown]
  - Swelling face [Unknown]
  - Oral mucosal exfoliation [Unknown]

NARRATIVE: CASE EVENT DATE: 20180828
